FAERS Safety Report 11864643 (Version 1)
Quarter: 2015Q4

REPORT INFORMATION
  Report Type: Spontaneous
  Country: FR (occurrence: FR)
  Receive Date: 20151223
  Receipt Date: 20151223
  Transmission Date: 20160305
  Serious: Yes (Hospitalization)
  Sender: FDA-Public Use
  Company Number: FR-PFIZER INC-2015440137

PATIENT
  Age: 24 Year
  Sex: Male

DRUGS (13)
  1. TYGACIL [Suspect]
     Active Substance: TIGECYCLINE
     Indication: STAPHYLOCOCCAL INFECTION
     Dosage: 50 MG, 2X/DAY
     Route: 042
     Dates: start: 20150925, end: 20151007
  2. CLINDAMYCIN PHOSPHATE. [Concomitant]
     Active Substance: CLINDAMYCIN PHOSPHATE
     Indication: STAPHYLOCOCCAL INFECTION
     Dosage: UNK
     Dates: start: 20150925
  3. BACLOFEN. [Concomitant]
     Active Substance: BACLOFEN
  4. RIFADINE [Concomitant]
     Active Substance: RIFAMPIN
     Indication: KLEBSIELLA INFECTION
  5. IMOVANE [Concomitant]
     Active Substance: ZOPICLONE
  6. VALIUM [Concomitant]
     Active Substance: DIAZEPAM
  7. RIFADINE [Concomitant]
     Active Substance: RIFAMPIN
     Indication: STAPHYLOCOCCAL INFECTION
     Dosage: UNK
     Dates: start: 20150925
  8. CLINDAMYCIN PHOSPHATE. [Concomitant]
     Active Substance: CLINDAMYCIN PHOSPHATE
     Indication: KLEBSIELLA INFECTION
  9. TYGACIL [Suspect]
     Active Substance: TIGECYCLINE
     Indication: KLEBSIELLA INFECTION
  10. ATARAX [Concomitant]
     Active Substance: HYDROXYZINE\HYDROXYZINE HYDROCHLORIDE
  11. PARAFFIN, LIQUID [Concomitant]
  12. DANTRIUM [Concomitant]
     Active Substance: DANTROLENE SODIUM
  13. MOVICOL [Concomitant]
     Active Substance: POLYETHYLENE GLYCOL 3350\POTASSIUM CHLORIDE\SODIUM BICARBONATE\SODIUM CHLORIDE

REACTIONS (3)
  - Hyperhidrosis [Recovered/Resolved]
  - Hypotonia [Recovered/Resolved]
  - Tremor [Recovered/Resolved]

NARRATIVE: CASE EVENT DATE: 20151007
